FAERS Safety Report 10658360 (Version 3)
Quarter: 2014Q4

REPORT INFORMATION
  Report Type: Spontaneous
  Country: US (occurrence: US)
  Receive Date: 20141217
  Receipt Date: 20141229
  Transmission Date: 20150529
  Serious: Yes (Other)
  Sender: FDA-Public Use
  Company Number: US-JNJFOC-20141207195

PATIENT
  Age: 9 Year
  Sex: Male

DRUGS (1)
  1. COOL MINT LISTERINE ANTISEPTIC [Suspect]
     Active Substance: EUCALYPTOL\MENTHOL\METHYL SALICYLATE\THYMOL
     Indication: PRODUCT USED FOR UNKNOWN INDICATION
     Dosage: THREE SWALLOWS WORTH
     Route: 048
     Dates: start: 20141209

REACTIONS (2)
  - Incorrect route of drug administration [Unknown]
  - Haemoptysis [Unknown]

NARRATIVE: CASE EVENT DATE: 20141209
